FAERS Safety Report 24030168 (Version 1)
Quarter: 2024Q2

REPORT INFORMATION
  Report Type: Spontaneous
  Country: FR (occurrence: FR)
  Receive Date: 20240628
  Receipt Date: 20240628
  Transmission Date: 20240716
  Serious: Yes (Death)
  Sender: FDA-Public Use
  Company Number: None

PATIENT
  Age: 66 Year
  Sex: Male
  Weight: 67 kg

DRUGS (13)
  1. OXALIPLATIN [Suspect]
     Active Substance: OXALIPLATIN
     Indication: Adenocarcinoma
     Dosage: ROUTE: INTRAVENOUS
     Dates: start: 20230905, end: 20230905
  2. CAPECITABINE [Suspect]
     Active Substance: CAPECITABINE
     Indication: Adenocarcinoma
     Dosage: 1000MG/M2 MORNING AND EVENING?ROUTE: ORAL ?FORM: TABLET
     Dates: start: 20230905, end: 20230919
  3. TAMSULOSIN HYDROCHLORIDE [Concomitant]
     Active Substance: TAMSULOSIN HYDROCHLORIDE
     Indication: Benign prostatic hyperplasia
     Dosage: 0.0.1?ROUTE: ORAL
  4. SPASFON [Concomitant]
     Indication: Product used for unknown indication
     Dosage: ROUTE: ORAL
  5. ACETAMINOPHEN [Concomitant]
     Active Substance: ACETAMINOPHEN
     Indication: Product used for unknown indication
     Dosage: ROUTE: ORAL
  6. FOLIC ACID [Concomitant]
     Active Substance: FOLIC ACID
     Indication: Product used for unknown indication
     Dosage: 1.0.0?ROUTE: ORAL
  7. PROPRANOLOL [Concomitant]
     Active Substance: PROPRANOLOL HYDROCHLORIDE
     Indication: Hypertension
     Dosage: 1.0.1?ROUTE: ORAL
  8. CANDESARTAN CILEXETIL [Concomitant]
     Active Substance: CANDESARTAN CILEXETIL
     Indication: Hypertension
     Dosage: 1.0.0?ROUTE: ORAL
  9. CHOLECALCIFEROL [Concomitant]
     Active Substance: CHOLECALCIFEROL
     Dosage: ROUTE: ORAL
  10. OMEPRAZOLE [Concomitant]
     Active Substance: OMEPRAZOLE
     Indication: Product used for unknown indication
     Dosage: 1.0.0?ROUTE: ORAL
  11. BROMAZEPAM [Concomitant]
     Active Substance: BROMAZEPAM
     Indication: Mixed anxiety and depressive disorder
     Dosage: 1/4.0.1/2?ROUTE: ORAL
  12. OXAZEPAM [Concomitant]
     Active Substance: OXAZEPAM
     Indication: Mixed anxiety and depressive disorder
     Dosage: 5 MG : 1.1.1?ROUTE: ORAL
  13. CITALOPRAM BROMIHYDRATE [Concomitant]
     Indication: Mixed anxiety and depressive disorder
     Dosage: 0.0.1?ROUTE: ORAL

REACTIONS (2)
  - Gastrointestinal necrosis [Fatal]
  - Peritonitis [Fatal]

NARRATIVE: CASE EVENT DATE: 20230923
